FAERS Safety Report 4809089-9 (Version None)
Quarter: 2005Q4

REPORT INFORMATION
  Report Type: 
  Country: None (occurrence: None)
  Receive Date: 20051021
  Receipt Date: 20041209
  Transmission Date: 20060501
  Serious: Yes (Hospitalization)
  Sender: FDA-Public Use
  Company Number: DSA_70535_2004

PATIENT
  Age: 27 Year
  Sex: Male

DRUGS (1)
  1. AZATHIOPRINE [Suspect]
     Indication: COLITIS ULCERATIVE
     Dosage: DF

REACTIONS (8)
  - DRUG HYPERSENSITIVITY [None]
  - IRIDOCYCLITIS [None]
  - LYMPHOPENIA [None]
  - NASAL CONGESTION [None]
  - ODYNOPHAGIA [None]
  - PANCREATITIS [None]
  - SERUM SICKNESS [None]
  - VIRAL INFECTION [None]
